FAERS Safety Report 8153657-6 (Version None)
Quarter: 2012Q1

REPORT INFORMATION
  Report Type: 
  Country: None (occurrence: None)
  Receive Date: 20120221
  Receipt Date: 20120210
  Transmission Date: 20120608
  Serious: Yes (Other)
  Sender: FDA-Public Use
  Company Number: JP-JNJFOC-20120112124

PATIENT
  Age: 67 Year
  Sex: Female

DRUGS (2)
  1. REMICADE [Suspect]
     Indication: COLITIS ULCERATIVE
     Route: 042
     Dates: start: 20101116
  2. REMICADE [Suspect]
     Dosage: 8 TH INFUSION
     Route: 042

REACTIONS (4)
  - PYREXIA [None]
  - CELLULITIS [None]
  - HAEMATOCHEZIA [None]
  - PYODERMA GANGRENOSUM [None]
